FAERS Safety Report 16634902 (Version 1)
Quarter: 2019Q3

REPORT INFORMATION
  Report Type: Spontaneous
  Country: IT (occurrence: IT)
  Receive Date: 20190726
  Receipt Date: 20190726
  Transmission Date: 20191004
  Serious: Yes (Other)
  Sender: FDA-Public Use
  Company Number: IT-LUPIN PHARMACEUTICALS INC.-2018-06653

PATIENT
  Age: 38 Year
  Sex: Female

DRUGS (4)
  1. CLOBAZAM. [Concomitant]
     Active Substance: CLOBAZAM
     Indication: GENERALISED TONIC-CLONIC SEIZURE
     Dosage: 10 MG, BID
     Route: 065
  2. LAMOTRIGINE. [Suspect]
     Active Substance: LAMOTRIGINE
     Indication: GENERALISED TONIC-CLONIC SEIZURE
     Dosage: 450 MG, QD
     Route: 065
  3. ESTRADIOL. [Interacting]
     Active Substance: ESTRADIOL
     Indication: ENDOMETRIAL DISORDER
     Dosage: 4 MG, UNK
     Route: 065
  4. LAMOTRIGINE. [Interacting]
     Active Substance: LAMOTRIGINE
     Dosage: 350 MG, QD
     Route: 065

REACTIONS (5)
  - Condition aggravated [Unknown]
  - Exposure during pregnancy [Unknown]
  - Drug level decreased [Unknown]
  - Drug interaction [Unknown]
  - Seizure [Unknown]
